FAERS Safety Report 20756314 (Version 1)
Quarter: 2022Q2

REPORT INFORMATION
  Report Type: Report from Study
  Country: BR (occurrence: BR)
  Receive Date: 20220427
  Receipt Date: 20220427
  Transmission Date: 20220720
  Serious: Yes (Other)
  Sender: FDA-Public Use
  Company Number: BR-NOVARTISPH-NVSC2022BR095022

PATIENT
  Sex: Female

DRUGS (2)
  1. BETOPTIC [Suspect]
     Active Substance: BETAXOLOL HYDROCHLORIDE
     Indication: Glaucoma
     Dosage: 2,8 MG-ML 2 DROPS PER DAY (1 IN THE MORNING AND 1 AT NIGHT)
     Route: 047
  2. DAFLON [Concomitant]
     Indication: Thrombosis
     Dosage: 1000 MG
     Route: 065

REACTIONS (9)
  - Gastric cancer [Recovered/Resolved]
  - Cataract [Unknown]
  - Glaucoma [Unknown]
  - Eye disorder [Unknown]
  - Myopia [Unknown]
  - Nervousness [Unknown]
  - Blood glucose abnormal [Recovering/Resolving]
  - Inappropriate schedule of product administration [Unknown]
  - Product quality issue [Unknown]
